FAERS Safety Report 21449689 (Version 4)
Quarter: 2023Q1

REPORT INFORMATION
  Report Type: Report from Study
  Country: US (occurrence: US)
  Receive Date: 20221013
  Receipt Date: 20230309
  Transmission Date: 20230417
  Serious: Yes (Hospitalization, Other)
  Sender: FDA-Public Use
  Company Number: US-ABBVIE-4152918

PATIENT
  Age: 60 Year
  Sex: Female
  Weight: 122.01 kg

DRUGS (24)
  1. HUMIRA [Suspect]
     Active Substance: ADALIMUMAB
     Indication: Ankylosing spondylitis
     Dosage: FORM STRENGTH: 40 MG
     Route: 058
  2. HUMIRA [Suspect]
     Active Substance: ADALIMUMAB
     Route: 058
     Dates: start: 20221003
  3. HUMIRA [Suspect]
     Active Substance: ADALIMUMAB
     Route: 058
     Dates: start: 20221105
  4. potassium chloride SA (KLOR-CON) CR tablet [Concomitant]
     Indication: Product used for unknown indication
  5. Pfizer BioNTech [Concomitant]
     Indication: COVID-19 immunisation
     Dosage: ONE IN ONCE (1ST DOSE)
     Route: 030
  6. Pfizer BioNTech [Concomitant]
     Indication: COVID-19 immunisation
     Dosage: ONE IN ONCE (2ND DOSE)
     Route: 030
  7. Pfizer BioNTech [Concomitant]
     Indication: COVID-19 immunisation
     Dosage: ONE IN ONCE (BOOSTER DOSE)
     Route: 030
  8. levETlRAcetam (KEPPRA) [Concomitant]
     Indication: Product used for unknown indication
     Dosage: 1,500 MG, 1,500 MG, INTRAVENOUS, O12H
     Route: 042
  9. labetaloL (NORMODYNE) [Concomitant]
     Indication: Product used for unknown indication
     Dosage: SYRINGE 20 MG, 20 MG
     Route: 042
  10. sertraline (ZOLOFT) tablet [Concomitant]
     Indication: Product used for unknown indication
     Route: 048
  11. magnesium sulfate in sterile water [Concomitant]
     Indication: Product used for unknown indication
     Dosage: 2 GRAM/50 ML (4 %) IVPB 2 G, 2 G
     Route: 042
  12. metroNIDAZOLE (FLAGYL) IVPB [Concomitant]
     Indication: Product used for unknown indication
     Route: 042
  13. fentaNYL (SUBLIMAZE) [Concomitant]
     Indication: Product used for unknown indication
     Dosage: 10 MCG/ML INFUSION 100ML, 25-200 MCG/HR
     Route: 042
  14. propofoL (DIPRIVAN) infusion [Concomitant]
     Indication: Product used for unknown indication
     Dosage: 0-70 MCG/KG/MIN
     Route: 042
  15. vancomycin (FIRVANQ) oral solution [Concomitant]
     Indication: Product used for unknown indication
  16. lacosamide (VIMPAT) [Concomitant]
     Indication: Product used for unknown indication
     Dosage: 200 MG IN SODIUM CHLORIDE (NS) 0.9 % 120 ML IVPB, 200 MG
     Route: 042
  17. LIDOCAINE [Concomitant]
     Active Substance: LIDOCAINE
     Indication: Product used for unknown indication
     Dosage: TIME INTERVAL: AS NECESSARY: 1 ML, INTRADERMAL, PRN?1% INJECTION
     Route: 023
  18. pantoprazole (PROTONIX) injection [Concomitant]
     Indication: Product used for unknown indication
     Route: 042
  19. THIAMINE [Concomitant]
     Active Substance: THIAMINE
     Indication: Product used for unknown indication
  20. valproate (DEPAKENE) [Concomitant]
     Indication: Product used for unknown indication
  21. SODIUM PHOSPHATE [Concomitant]
     Active Substance: SODIUM PHOSPHATE
     Indication: Product used for unknown indication
  22. HEPARIN SODIUM, PORCINE [Concomitant]
     Active Substance: HEPARIN SODIUM
     Indication: Product used for unknown indication
     Dosage: 5,000 UNIT/ML INJECTION 5,000 UNITS, 5,000 UNITS,
     Route: 058
  23. norepinephrine (LEVOPHED) [Concomitant]
     Indication: Product used for unknown indication
     Dosage: 8 MG/250 ML (32 MCG/ML) INFUSION, 2-50 MCG/MIN
     Route: 042
  24. NEURONTIN [Concomitant]
     Active Substance: GABAPENTIN
     Indication: Product used for unknown indication
     Dosage: 250 MG/5 ML SOLUTION 600 MG, 600 MG, PER NG TUBE, Q8H SCH

REACTIONS (3)
  - Seizure [Recovering/Resolving]
  - Seizure [Recovering/Resolving]
  - Cerebrovascular accident [Recovering/Resolving]

NARRATIVE: CASE EVENT DATE: 20220906
